FAERS Safety Report 14938172 (Version 3)
Quarter: 2018Q3

REPORT INFORMATION
  Report Type: Spontaneous
  Country: US (occurrence: US)
  Receive Date: 20180525
  Receipt Date: 20180814
  Transmission Date: 20181010
  Serious: No
  Sender: FDA-Public Use
  Company Number: US-VERTEX PHARMACEUTICALS-2018-003575

PATIENT
  Age: 14 Year
  Sex: Male

DRUGS (16)
  1. ZOFRAN [Concomitant]
     Active Substance: ONDANSETRON HYDROCHLORIDE
     Indication: NAUSEA
     Dosage: 1 DOSAGE FORM EVERY SIX HOUR
     Route: 048
     Dates: start: 20180607
  2. MAXALT [Concomitant]
     Active Substance: RIZATRIPTAN BENZOATE
     Indication: MIGRAINE
     Dosage: 1 DOSAGE FORM, MAY REPEAT IN 2 HOURS IF NEEDED
     Route: 048
  3. SODIUM CHLORIDE. [Concomitant]
     Active Substance: SODIUM CHLORIDE
     Dosage: 1 VIAL, BID
     Route: 055
     Dates: start: 20180621
  4. BOOST [Concomitant]
     Active Substance: DIETARY SUPPLEMENT
     Dosage: 1 BOTTLE PER DAY
     Route: 048
     Dates: start: 20180109
  5. VICOPROFEN [Concomitant]
     Active Substance: HYDROCODONE BITARTRATE\IBUPROFEN
     Dosage: 1 DOSAGE FORM, EVERY SOX HOUR
     Route: 048
     Dates: start: 20180726
  6. PULMOZYME [Concomitant]
     Active Substance: DORNASE ALFA
     Dosage: 1 VIAL, QD
     Route: 055
     Dates: start: 20180720
  7. ULTRAM [Concomitant]
     Active Substance: TRAMADOL HYDROCHLORIDE
     Indication: PAIN
     Dosage: 1 DOSAGE FORM, EVERY SIX HOUR
     Route: 048
     Dates: start: 20180731
  8. PROGRAF [Concomitant]
     Active Substance: TACROLIMUS\TACROLIMUS ANHYDROUS
     Dosage: 2 DOSAGE FORM, BID
     Route: 048
     Dates: start: 20180323
  9. TOBI [Concomitant]
     Active Substance: TOBRAMYCIN
     Dosage: 300 MG, BID, 28 DAYS CYCLE
     Route: 055
     Dates: start: 20180308
  10. ROXICODONE [Concomitant]
     Active Substance: OXYCODONE HYDROCHLORIDE
     Indication: PAIN
     Dosage: 1/2 OR 1 TABLET EVERY SIX HOUR
     Dates: start: 20180724
  11. ZOFRAN [Concomitant]
     Active Substance: ONDANSETRON HYDROCHLORIDE
     Dosage: 1 DOSAGE FORM EVERY SIX HOUR
     Dates: start: 20180726
  12. PULMOZYME [Concomitant]
     Active Substance: DORNASE ALFA
     Dosage: 1 VIAL, QD
     Route: 055
     Dates: start: 20180510
  13. ZENPEP [Concomitant]
     Active Substance: PANCRELIPASE AMYLASE\PANCRELIPASE LIPASE\PANCRELIPASE PROTEASE
     Dosage: 5 CAPSULES WITH MEALS 3 WITH SNACKS
     Route: 048
     Dates: start: 20180313
  14. ORKAMBI [Suspect]
     Active Substance: IVACAFTOR\LUMACAFTOR
     Indication: CYSTIC FIBROSIS
     Dosage: 400/250 MG, BID
     Route: 048
     Dates: start: 20180131, end: 20180523
  15. XANAX [Concomitant]
     Active Substance: ALPRAZOLAM
     Indication: ANXIETY
     Dosage: 2 DOSAGE FORM, BID
     Route: 048
     Dates: start: 20180726
  16. PRILOSEC [Concomitant]
     Active Substance: OMEPRAZOLE MAGNESIUM
     Dosage: 1 DOSAGE FORM, QD
     Route: 048
     Dates: start: 20180323

REACTIONS (3)
  - Aspartate aminotransferase increased [Recovered/Resolved]
  - Gamma-glutamyltransferase increased [Recovered/Resolved]
  - Clostridium difficile infection [Unknown]

NARRATIVE: CASE EVENT DATE: 20180419
